FAERS Safety Report 9312841 (Version 2)
Quarter: 2013Q2

REPORT INFORMATION
  Report Type: Spontaneous
  Country: US (occurrence: US)
  Receive Date: 20130528
  Receipt Date: 20130617
  Transmission Date: 20140414
  Serious: No
  Sender: FDA-Public Use
  Company Number: US-009507513-1305USA015946

PATIENT
  Age: 43 Year
  Sex: Male
  Weight: 81.63 kg

DRUGS (1)
  1. CLARITIN [Suspect]
     Indication: SEASONAL ALLERGY
     Dosage: 10 MG, QD
     Route: 048
     Dates: start: 201302, end: 201304

REACTIONS (2)
  - Poor quality sleep [Recovered/Resolved]
  - Drug ineffective [Unknown]
